FAERS Safety Report 15803983 (Version 1)
Quarter: 2019Q1

REPORT INFORMATION
  Report Type: Spontaneous
  Country: DE (occurrence: DE)
  Receive Date: 20190109
  Receipt Date: 20190109
  Transmission Date: 20190417
  Serious: Yes (Other)
  Sender: FDA-Public Use
  Company Number: DE-JNJFOC-20190109348

PATIENT
  Age: 34 Year
  Sex: Male

DRUGS (1)
  1. SIMPONI [Suspect]
     Active Substance: GOLIMUMAB
     Indication: ANKYLOSING SPONDYLITIS
     Dosage: CUMULATIVE DOSE TO FIRST REACTION WAS 48 DOSAGE FORMS
     Route: 058
     Dates: start: 201411

REACTIONS (1)
  - Nasal cavity cancer [Unknown]

NARRATIVE: CASE EVENT DATE: 201811
